FAERS Safety Report 6615719-1 (Version None)
Quarter: 2010Q1

REPORT INFORMATION
  Report Type: 
  Country: None (occurrence: None)
  Receive Date: 20100305
  Receipt Date: 20100218
  Transmission Date: 20100710
  Serious: Yes (Hospitalization)
  Sender: FDA-Public Use
  Company Number: US-ROCHE-688718

PATIENT
  Sex: Male
  Weight: 90.7 kg

DRUGS (1)
  1. CAPECITABINE [Suspect]
     Indication: COLORECTAL CANCER
     Dosage: 1500 MG IN MORNING AND 1000 MG AT NIGHT
     Route: 048
     Dates: start: 20091024, end: 20100209

REACTIONS (3)
  - BRAIN OEDEMA [None]
  - HYPOTENSION [None]
  - METASTASES TO CENTRAL NERVOUS SYSTEM [None]
